FAERS Safety Report 18503792 (Version 2)
Quarter: 2020Q4

REPORT INFORMATION
  Report Type: Report from Study
  Country: US (occurrence: US)
  Receive Date: 20201113
  Receipt Date: 20201217
  Transmission Date: 20210114
  Serious: No
  Sender: FDA-Public Use
  Company Number: NVSC2020US302774

PATIENT
  Age: 53 Year
  Sex: Female

DRUGS (1)
  1. ENTRESTO [Suspect]
     Active Substance: SACUBITRIL\VALSARTAN
     Indication: CARDIAC FAILURE CONGESTIVE
     Dosage: 50 MG, QD (24/26 MG) 1/2 TABLET
     Route: 048
     Dates: start: 20201103

REACTIONS (2)
  - Wrong technique in product usage process [Unknown]
  - Pollakiuria [Unknown]

NARRATIVE: CASE EVENT DATE: 20201103
